FAERS Safety Report 9720703 (Version 2)
Quarter: 2014Q2

REPORT INFORMATION
  Report Type: Report from Study
  Country: CN (occurrence: CN)
  Receive Date: 20131129
  Receipt Date: 20140513
  Transmission Date: 20141212
  Serious: Yes (Death, Other)
  Sender: FDA-Public Use
  Company Number: PHHY2013CN137080

PATIENT
  Age: 59 Year
  Sex: Female

DRUGS (1)
  1. GLIVEC [Suspect]
     Indication: CHRONIC MYELOID LEUKAEMIA
     Dosage: 400 MG, QD
     Route: 048
     Dates: start: 20130823

REACTIONS (10)
  - Chronic myeloid leukaemia [Fatal]
  - Malignant neoplasm progression [Fatal]
  - Multi-organ failure [Unknown]
  - Haemorrhagic diathesis [Unknown]
  - Chronic myeloid leukaemia transformation [Unknown]
  - Cardiac failure [Unknown]
  - Renal failure [Unknown]
  - Platelet count decreased [Unknown]
  - Oedema [Unknown]
  - Fatigue [Unknown]
